FAERS Safety Report 7946231-5 (Version None)
Quarter: 2011Q4

REPORT INFORMATION
  Report Type: 
  Country: None (occurrence: None)
  Receive Date: 20111129
  Receipt Date: 20111117
  Transmission Date: 20120403
  Serious: Yes (Death, Hospitalization, Other)
  Sender: FDA-Public Use
  Company Number: JP-ROCHE-735022

PATIENT
  Sex: Female
  Weight: 32 kg

DRUGS (4)
  1. AVASTIN [Suspect]
     Indication: LUNG ADENOCARCINOMA
     Route: 041
     Dates: start: 20100713, end: 20100914
  2. AVASTIN [Suspect]
     Route: 041
     Dates: start: 20100921, end: 20100921
  3. TAXOL [Suspect]
     Dosage: DISCONTINUED.
     Route: 042
     Dates: start: 20100803, end: 20100914
  4. TAXOL [Suspect]
     Indication: LUNG ADENOCARCINOMA
     Route: 042
     Dates: start: 20100713, end: 20100713

REACTIONS (7)
  - SENSORY DISTURBANCE [None]
  - CONVULSION [None]
  - HAEMOPTYSIS [None]
  - POSTERIOR REVERSIBLE ENCEPHALOPATHY SYNDROME [None]
  - ASPHYXIA [None]
  - LUNG INFECTION [None]
  - VISUAL IMPAIRMENT [None]
